FAERS Safety Report 20954321 (Version 2)
Quarter: 2022Q2

REPORT INFORMATION
  Report Type: Spontaneous
  Country: CA (occurrence: CA)
  Receive Date: 20220614
  Receipt Date: 20220621
  Transmission Date: 20220721
  Serious: Yes (Other)
  Sender: FDA-Public Use
  Company Number: CA-DENTSPLY-2022SCDP000156

PATIENT
  Age: 29 Year
  Sex: Female

DRUGS (1)
  1. LIDOCAINE [Suspect]
     Active Substance: LIDOCAINE
     Indication: Local anaesthesia
     Dosage: UNK
     Route: 003

REACTIONS (3)
  - Embolia cutis medicamentosa [None]
  - Injection site reaction [None]
  - Maternal exposure during pregnancy [Unknown]
